FAERS Safety Report 9991940 (Version 2)
Quarter: 2014Q2

REPORT INFORMATION
  Report Type: Spontaneous
  Country: US (occurrence: US)
  Receive Date: 20140310
  Receipt Date: 20140514
  Transmission Date: 20141212
  Serious: Yes (Death, Hospitalization, Other)
  Sender: FDA-Public Use
  Company Number: US-ASTELLAS-2014US001858

PATIENT
  Age: 67 Year
  Sex: Male

DRUGS (20)
  1. XTANDI [Suspect]
     Indication: PROSTATE CANCER
     Route: 048
     Dates: start: 20131128, end: 20131230
  2. TAMSULOSIN [Concomitant]
     Indication: PRODUCT USED FOR UNKNOWN INDICATION
     Dosage: 0.4 MG, ONCE DAILY
     Route: 048
     Dates: start: 20110808
  3. CALCIUM 600 + D [Concomitant]
     Indication: PRODUCT USED FOR UNKNOWN INDICATION
     Route: 048
     Dates: start: 20110808, end: 20140114
  4. CASODEX [Concomitant]
     Indication: PRODUCT USED FOR UNKNOWN INDICATION
     Route: 048
     Dates: start: 20110808
  5. HYDROCODONE/ACETAMINOPHEN          /00607101/ [Concomitant]
     Indication: PRODUCT USED FOR UNKNOWN INDICATION
     Route: 048
     Dates: start: 20110908
  6. AMBIEN [Concomitant]
     Indication: PRODUCT USED FOR UNKNOWN INDICATION
     Dosage: 10 MG, AT BEDTIME AS NEEDED
     Route: 048
     Dates: start: 20111115
  7. FUROSEMIDE [Concomitant]
     Indication: PRODUCT USED FOR UNKNOWN INDICATION
     Dosage: 40 MG, ONCE DAILY AS NEEDED
     Route: 048
     Dates: start: 20120326
  8. PROCHLORPERAZINE MALEATE [Concomitant]
     Indication: NAUSEA
     Dosage: 10 MG, EVERY 8 HOURS AS NEEDED
     Route: 048
     Dates: start: 20120403
  9. PROCHLORPERAZINE MALEATE [Concomitant]
     Indication: VOMITING
  10. ZOFRAN                             /00955301/ [Concomitant]
     Indication: NAUSEA
     Dosage: 8 MG, TWICE DAILY AS NEEDED
     Route: 048
     Dates: start: 20120403
  11. ZOFRAN                             /00955301/ [Concomitant]
     Indication: VOMITING
  12. ZOMETA [Concomitant]
     Indication: PRODUCT USED FOR UNKNOWN INDICATION
     Route: 042
     Dates: start: 20120412
  13. XGEVA [Concomitant]
     Indication: PRODUCT USED FOR UNKNOWN INDICATION
     Route: 058
     Dates: start: 20130321, end: 20140114
  14. LUPRON [Concomitant]
     Indication: PRODUCT USED FOR UNKNOWN INDICATION
     Dosage: 22.5 MG, EVERY 3 MONTHS
     Route: 030
  15. POTASSIUM CHLORIDE [Concomitant]
     Indication: PRODUCT USED FOR UNKNOWN INDICATION
     Route: 048
     Dates: start: 20131001
  16. PREDNISONE [Concomitant]
     Indication: PRODUCT USED FOR UNKNOWN INDICATION
     Route: 048
     Dates: start: 20130503
  17. NEURONTIN [Concomitant]
     Indication: PRODUCT USED FOR UNKNOWN INDICATION
     Dosage: TWO IN AM AND THREE IN PM
     Route: 048
     Dates: start: 20130606
  18. LORAZEPAM [Concomitant]
     Indication: ANXIETY
     Dosage: 1 MG, ONCE DAILY PRN
     Route: 048
     Dates: start: 20130719
  19. KEFLEX                             /00145501/ [Concomitant]
     Indication: PRODUCT USED FOR UNKNOWN INDICATION
     Route: 048
     Dates: start: 20131211, end: 20131218
  20. ARANESP [Concomitant]
     Indication: PRODUCT USED FOR UNKNOWN INDICATION
     Route: 058
     Dates: start: 20131212, end: 20140114

REACTIONS (2)
  - Gastrointestinal haemorrhage [Unknown]
  - Malignant neoplasm progression [Fatal]
